FAERS Safety Report 15113143 (Version 1)
Quarter: 2018Q3

REPORT INFORMATION
  Report Type: Report from Study
  Country: None (occurrence: BR)
  Receive Date: 20180706
  Receipt Date: 20180706
  Transmission Date: 20181010
  Serious: Yes (Other)
  Sender: FDA-Public Use
  Company Number: BR-ABBVIE-16K-020-1687574-00

PATIENT
  Age: 62 Year
  Sex: Female
  Weight: 78 kg

DRUGS (8)
  1. METHOTREXATE. [Concomitant]
     Active Substance: METHOTREXATE
     Indication: RHEUMATOID ARTHRITIS
  2. HUMIRA [Suspect]
     Active Substance: ADALIMUMAB
     Indication: RHEUMATOID ARTHRITIS
     Route: 058
     Dates: end: 201512
  3. HUMIRA [Suspect]
     Active Substance: ADALIMUMAB
     Route: 058
     Dates: start: 201512
  4. CYMBALTA [Concomitant]
     Active Substance: DULOXETINE HYDROCHLORIDE
     Indication: ANXIETY
  5. CYMBALTA [Concomitant]
     Active Substance: DULOXETINE HYDROCHLORIDE
     Indication: DEPRESSION
     Route: 048
     Dates: start: 2008
  6. HUMIRA [Suspect]
     Active Substance: ADALIMUMAB
     Route: 058
     Dates: start: 20160726, end: 20180609
  7. DEFLAZACORT [Concomitant]
     Active Substance: DEFLAZACORT
     Indication: RHEUMATOID ARTHRITIS
  8. DONAREN [Concomitant]
     Active Substance: TRAZODONE HYDROCHLORIDE
     Indication: SLEEP DISORDER THERAPY
     Route: 048
     Dates: start: 2008

REACTIONS (28)
  - Tendon disorder [Recovered/Resolved]
  - Blood cholesterol increased [Recovered/Resolved]
  - Bone pain [Recovering/Resolving]
  - Synovitis [Recovered/Resolved]
  - Fall [Unknown]
  - Necrosis [Recovered/Resolved]
  - Blood potassium decreased [Recovered/Resolved]
  - Drug ineffective [Unknown]
  - Rheumatoid arthritis [Unknown]
  - Osteoarthritis [Recovered/Resolved]
  - Drug ineffective [Not Recovered/Not Resolved]
  - Arthralgia [Recovering/Resolving]
  - Neuralgia [Recovering/Resolving]
  - Musculoskeletal disorder [Recovered/Resolved]
  - Arthropathy [Recovered/Resolved]
  - Blood sodium increased [Recovered/Resolved]
  - Bone disorder [Unknown]
  - Unevaluable event [Unknown]
  - Inflammation [Recovered/Resolved]
  - Foot fracture [Recovering/Resolving]
  - Tendon pain [Recovering/Resolving]
  - Pain in extremity [Not Recovered/Not Resolved]
  - Fracture delayed union [Unknown]
  - Emotional disorder [Unknown]
  - Glucose tolerance impaired [Unknown]
  - Peripheral swelling [Not Recovered/Not Resolved]
  - Arthralgia [Not Recovered/Not Resolved]
  - Musculoskeletal pain [Recovering/Resolving]

NARRATIVE: CASE EVENT DATE: 201510
